FAERS Safety Report 9293138 (Version 1)
Quarter: 2013Q2

REPORT INFORMATION
  Report Type: Spontaneous
  Country: JP (occurrence: None)
  Receive Date: 20130514
  Receipt Date: 20130514
  Transmission Date: 20140414
  Serious: Yes (Death)
  Sender: FDA-Public Use
  Company Number: ADR-2013-00786

PATIENT
  Sex: 0

DRUGS (1)
  1. GABALON [Suspect]
     Indication: MUSCLE SPASTICITY
     Route: 037

REACTIONS (2)
  - Sepsis [None]
  - Multi-organ failure [None]
